FAERS Safety Report 9844858 (Version 1)
Quarter: 2014Q1

REPORT INFORMATION
  Report Type: Spontaneous
  Country: US (occurrence: None)
  Receive Date: 20140122
  Receipt Date: 20140122
  Transmission Date: 20141002
  Serious: Yes (Death)
  Sender: FDA-Public Use
  Company Number: B0960367A

PATIENT
  Age: 31 Year
  Sex: Male

DRUGS (2)
  1. DIAMORPHINE HYDROCHLORIDE [Suspect]
  2. BUPROPION HYDROCHLORIDE [Suspect]

REACTIONS (1)
  - Drug abuse [None]
